FAERS Safety Report 20764361 (Version 11)
Quarter: 2024Q1

REPORT INFORMATION
  Report Type: Spontaneous
  Country: US (occurrence: US)
  Receive Date: 20220428
  Receipt Date: 20240116
  Transmission Date: 20240410
  Serious: No
  Sender: FDA-Public Use
  Company Number: US-PFIZER INC-202200501305

PATIENT
  Age: 63 Year
  Sex: Male

DRUGS (16)
  1. INLYTA [Suspect]
     Active Substance: AXITINIB
     Indication: Renal cancer metastatic
     Dosage: TAKE 2 TABLETS (2 MG TOTAL) BY MOUTH EVERY 12 (TWELVE) HOURS
     Route: 048
     Dates: start: 20220122
  2. INLYTA [Suspect]
     Active Substance: AXITINIB
     Dosage: 5 MG, 2X/DAY (EVERY 12 HOURS)
     Route: 048
     Dates: start: 20220316
  3. INLYTA [Suspect]
     Active Substance: AXITINIB
     Dosage: 3 MG, 2X/DAY (1 MG TABLET, TAKE 3 TABLETS EVERY 12 HOURS)
     Route: 048
  4. INLYTA [Suspect]
     Active Substance: AXITINIB
     Dosage: TAKE 2 TABLETS (2 MG TOTAL) BY MOUTH EVERY 12 (TWELVE) HOURS
     Route: 048
     Dates: end: 20221222
  5. INLYTA [Suspect]
     Active Substance: AXITINIB
     Dosage: 3MG IN AM AND 2MG PM (AT 8 O CLOCK) WITH OR WITHOUT FOOD/TAKES 3 IN THE MORNING AND 2 AT NIGHT
     Route: 048
     Dates: start: 20230615
  6. ACYCLOVIR [Concomitant]
     Active Substance: ACYCLOVIR
     Dosage: UNK
  7. ALBUTEROL SULFATE [Concomitant]
     Active Substance: ALBUTEROL SULFATE
     Dosage: UNK
  8. AMLODIPINE BESYLATE [Concomitant]
     Active Substance: AMLODIPINE BESYLATE
     Dosage: UNK
  9. BENZONATATE [Concomitant]
     Active Substance: BENZONATATE
     Dosage: UNK
  10. KEYTRUDA [Concomitant]
     Active Substance: PEMBROLIZUMAB
     Dosage: UNK
  11. LOPERAMIDE HYDROCHLORIDE [Concomitant]
     Active Substance: LOPERAMIDE HYDROCHLORIDE
     Dosage: UNK
  12. NYSTATIN [Concomitant]
     Active Substance: NYSTATIN
     Dosage: UNK
  13. ONDANSETRON [Concomitant]
     Active Substance: ONDANSETRON
     Dosage: UNK
  14. ROSUVASTATIN CALCIUM [Concomitant]
     Active Substance: ROSUVASTATIN CALCIUM
     Dosage: UNK
  15. TYLENOL [Concomitant]
     Active Substance: ACETAMINOPHEN
     Dosage: UNK
  16. VIAGRA [Concomitant]
     Active Substance: SILDENAFIL CITRATE
     Dosage: UNK

REACTIONS (7)
  - Therapeutic response unexpected [Unknown]
  - Increased appetite [Unknown]
  - Chest discomfort [Recovered/Resolved]
  - Renal function test abnormal [Unknown]
  - Pain in extremity [Unknown]
  - Product prescribing error [Unknown]
  - Product dose omission issue [Unknown]

NARRATIVE: CASE EVENT DATE: 20220320
